FAERS Safety Report 4633010-X (Version None)
Quarter: 2005Q2

REPORT INFORMATION
  Report Type: 
  Country: None (occurrence: None)
  Receive Date: 20050412
  Receipt Date: 20050401
  Transmission Date: 20051028
  Serious: Yes (Death)
  Sender: FDA-Public Use
  Company Number: US-JNJFOC-20050400776

PATIENT
  Age: 37 Year
  Sex: Female

DRUGS (4)
  1. SPORANOX [Suspect]
     Dosage: PROTOCOL: DAYS 3-14
     Route: 042
  2. SPORANOX [Suspect]
     Indication: ANTIFUNGAL PROPHYLAXIS
     Dosage: PROTOCOL: LOADING DOSE DAY 1-2
     Route: 042
  3. SPORANOX [Suspect]
     Dosage: PROTOCOL: DAYS 15-100
     Route: 049
  4. DILAUDID [Concomitant]

REACTIONS (6)
  - ENTEROCOCCAL INFECTION [None]
  - ENTEROCOCCAL SEPSIS [None]
  - HYPOTENSION [None]
  - HYPOXIA [None]
  - MENTAL STATUS CHANGES [None]
  - RESPIRATORY DISTRESS [None]
